FAERS Safety Report 22340886 (Version 1)
Quarter: 2023Q2

REPORT INFORMATION
  Report Type: Spontaneous
  Country: US (occurrence: None)
  Receive Date: 20230517
  Receipt Date: 20230517
  Transmission Date: 20230721
  Serious: Yes (Hospitalization)
  Sender: FDA-Public Use
  Company Number: None

PATIENT
  Sex: Male

DRUGS (17)
  1. TOBRAMYCIN [Suspect]
     Active Substance: TOBRAMYCIN
     Indication: Bronchiectasis
     Dosage: 300 MG/5ML INHALATION?? INHALE 5 ML VIA NEBULIZER TWICE DAILY (FOR 28 DAYS ON, THEN 28 DAYS OFF)
     Route: 055
     Dates: start: 20230120
  2. ALLOPURINOL [Concomitant]
     Active Substance: ALLOPURINOL
  3. ASPIRIN LOW [Concomitant]
  4. BUDESONIDE SUS [Concomitant]
  5. DOXAZOSIN [Concomitant]
     Active Substance: DOXAZOSIN MESYLATE
  6. FOLIC ACID [Concomitant]
     Active Substance: FOLIC ACID
  7. LISINOPRIL [Concomitant]
     Active Substance: LISINOPRIL
  8. MAGNESIUM [Concomitant]
     Active Substance: MAGNESIUM
  9. METOPROLOL TARTRATE [Concomitant]
     Active Substance: METOPROLOL TARTRATE
  10. PARLIC PLUS NEB SET VIOS PRO [Concomitant]
  11. SINGULAIR [Concomitant]
     Active Substance: MONTELUKAST SODIUM
  12. TRELEGY AER [Concomitant]
  13. VENTOLIN HFA AER [Concomitant]
  14. VITAMIN C [Concomitant]
     Active Substance: ASCORBIC ACID
  15. VITAMIN D3 [Concomitant]
     Active Substance: CHOLECALCIFEROL
  16. XANAX [Concomitant]
     Active Substance: ALPRAZOLAM
  17. ZYRTEC ALLGY [Concomitant]

REACTIONS (1)
  - Blood potassium abnormal [None]
